FAERS Safety Report 24772683 (Version 1)
Quarter: 2024Q4

REPORT INFORMATION
  Report Type: Spontaneous
  Country: US (occurrence: US)
  Receive Date: 20241225
  Receipt Date: 20241225
  Transmission Date: 20250115
  Serious: Yes (Hospitalization, Other)
  Sender: GLENMARK
  Company Number: US-MLMSERVICE-20241206-PI282374-00232-1

PATIENT

DRUGS (5)
  1. TACROLIMUS [Suspect]
     Active Substance: TACROLIMUS
     Indication: Immunosuppressant drug therapy
     Dosage: UNK
     Route: 065
     Dates: start: 2022
  2. MYCOPHENOLIC ACID [Suspect]
     Active Substance: MYCOPHENOLIC ACID
     Indication: Immunosuppressant drug therapy
     Dosage: UNK
     Route: 065
     Dates: start: 2022
  3. PREDNISONE [Suspect]
     Active Substance: PREDNISONE
     Indication: Immunosuppressant drug therapy
     Dosage: UNK
     Route: 065
     Dates: start: 2022
  4. SULFAMETHOXAZOLE\TRIMETHOPRIM [Concomitant]
     Active Substance: SULFAMETHOXAZOLE\TRIMETHOPRIM
     Indication: Prophylaxis
     Dosage: UNK
     Route: 065
     Dates: start: 2022
  5. VALGANCICLOVIR [Concomitant]
     Active Substance: VALGANCICLOVIR
     Indication: Prophylaxis
     Dosage: UNK
     Route: 065
     Dates: start: 2022

REACTIONS (11)
  - Lymphopenia [Unknown]
  - Haemoperitoneum [Unknown]
  - Hepatic lesion [Recovered/Resolved]
  - Splenic lesion [Recovered/Resolved]
  - Vertebral lesion [Recovered/Resolved]
  - Trench fever [Recovered/Resolved]
  - Haemoglobin decreased [Unknown]
  - Neutropenia [Unknown]
  - Peritonitis bacterial [Recovered/Resolved]
  - Cat scratch disease [Recovered/Resolved]
  - Bacillary angiomatosis [Recovered/Resolved]

NARRATIVE: CASE EVENT DATE: 20220101
